FAERS Safety Report 9824637 (Version 2)
Quarter: 2014Q1

REPORT INFORMATION
  Report Type: Spontaneous
  Country: US (occurrence: US)
  Receive Date: 20140117
  Receipt Date: 20140117
  Transmission Date: 20141002
  Serious: No
  Sender: FDA-Public Use
  Company Number: US-GILEAD-2011-0039030

PATIENT
  Sex: Female

DRUGS (16)
  1. LETAIRIS [Suspect]
     Indication: PORTOPULMONARY HYPERTENSION
     Route: 048
     Dates: start: 20100326, end: 20110429
  2. ADCIRCA [Concomitant]
  3. TRACLEER [Concomitant]
  4. REVATIO [Concomitant]
  5. NADOLOL [Concomitant]
  6. DILTIAZEM [Concomitant]
  7. SPIRONOLACTONE [Concomitant]
  8. FUROSEMIDE [Concomitant]
  9. POTASSIUM CHLORIDE [Concomitant]
  10. VENTOLIN HFA [Concomitant]
  11. LANTUS SOLOSTAR [Concomitant]
  12. NOVOLOG [Concomitant]
  13. OMEPRAZOLE [Concomitant]
  14. PROMETHAZINE [Concomitant]
  15. ACETAMINOPHEN [Concomitant]
  16. LEVOTHYROXINE [Concomitant]

REACTIONS (2)
  - Oedema peripheral [Recovering/Resolving]
  - Swelling face [Unknown]
